FAERS Safety Report 11248279 (Version 2)
Quarter: 2015Q3

REPORT INFORMATION
  Report Type: Spontaneous
  Country: US (occurrence: US)
  Receive Date: 20150708
  Receipt Date: 20150803
  Transmission Date: 20151125
  Serious: Yes (Hospitalization, Other)
  Sender: FDA-Public Use
  Company Number: US-ELI_LILLY_AND_COMPANY-US200609001168

PATIENT
  Age: 29 Year
  Sex: Male
  Weight: 158.73 kg

DRUGS (10)
  1. ZYPREXA [Suspect]
     Active Substance: OLANZAPINE
     Dosage: 10 MG, EACH EVENING
     Dates: start: 19970724, end: 199901
  2. ZYPREXA [Suspect]
     Active Substance: OLANZAPINE
     Dosage: 10 MG, 2/D
     Dates: start: 19990826, end: 200512
  3. PROZAC [Suspect]
     Active Substance: FLUOXETINE HYDROCHLORIDE
     Dosage: 20 MG, DAILY (1/D)
     Dates: start: 19970515, end: 19970724
  4. HALOPERIDOL. [Concomitant]
     Active Substance: HALOPERIDOL
     Dates: start: 199907, end: 199908
  5. NEFAZODONE [Concomitant]
     Active Substance: NEFAZODONE
     Dates: start: 1999, end: 200405
  6. RISPERIDONE. [Concomitant]
     Active Substance: RISPERIDONE
     Dates: start: 20001221
  7. ZYPREXA [Suspect]
     Active Substance: OLANZAPINE
     Dosage: 10 MG, EACH EVENING
     Dates: start: 199907, end: 19990825
  8. BUSPAR [Concomitant]
     Active Substance: BUSPIRONE HYDROCHLORIDE
     Dosage: 1 D/F, UNK
     Dates: start: 19970825
  9. PAROXETINE [Concomitant]
     Active Substance: PAROXETINE\PAROXETINE HYDROCHLORIDE
     Dates: start: 199707, end: 199707
  10. CITALOPRAM [Concomitant]
     Active Substance: CITALOPRAM HYDROBROMIDE
     Dates: start: 2004, end: 2005

REACTIONS (12)
  - Diabetes mellitus [Not Recovered/Not Resolved]
  - Anxiety [Recovered/Resolved]
  - Weight increased [Unknown]
  - Blood creatinine increased [Recovered/Resolved]
  - Oedema peripheral [Unknown]
  - Dry mouth [Unknown]
  - Blood cholesterol increased [Recovered/Resolved]
  - Urine protein/creatinine ratio increased [Unknown]
  - Chest pain [Recovered/Resolved]
  - Chest pain [Recovered/Resolved]
  - Sleep apnoea syndrome [Unknown]
  - Hypertension [Unknown]

NARRATIVE: CASE EVENT DATE: 199705
